FAERS Safety Report 9889320 (Version 3)
Quarter: 2014Q4

REPORT INFORMATION
  Report Type: Spontaneous
  Country: US (occurrence: US)
  Receive Date: 20140211
  Receipt Date: 20141030
  Transmission Date: 20150529
  Serious: Yes (Other)
  Sender: FDA-Public Use
  Company Number: US-009507513-1402USA004999

PATIENT
  Sex: Female

DRUGS (1)
  1. NUVARING [Suspect]
     Active Substance: ETHINYL ESTRADIOL\ETONOGESTREL
     Route: 067

REACTIONS (11)
  - Deep vein thrombosis [Unknown]
  - Thyroid disorder [Unknown]
  - Hypertension [Unknown]
  - Pulmonary embolism [Unknown]
  - Ovarian cystectomy [Unknown]
  - Cardiac murmur [Unknown]
  - Fibromyalgia [Unknown]
  - Ovarian cyst [Unknown]
  - Tumour excision [Unknown]
  - Fluid retention [Unknown]
  - Embolism venous [Unknown]

NARRATIVE: CASE EVENT DATE: 20130101
